FAERS Safety Report 6400322-9 (Version None)
Quarter: 2009Q4

REPORT INFORMATION
  Report Type: 
  Country: None (occurrence: None)
  Receive Date: 20091014
  Receipt Date: 20090825
  Transmission Date: 20100525
  Serious: Yes (Other)
  Sender: FDA-Public Use
  Company Number: US-PURDUE-USA-2009-0039871

PATIENT
  Sex: Male

DRUGS (1)
  1. OXYCONTIN [Suspect]
     Indication: ANALGESIC THERAPY
     Dosage: 10 MG, BID
     Dates: start: 20001102, end: 20050623

REACTIONS (5)
  - INSOMNIA [None]
  - MUSCLE SPASMS [None]
  - PAIN [None]
  - SUICIDAL IDEATION [None]
  - TREMOR [None]
